FAERS Safety Report 6048616-3 (Version None)
Quarter: 2009Q1

REPORT INFORMATION
  Report Type: 
  Country: None (occurrence: None)
  Receive Date: 20090123
  Receipt Date: 20090119
  Transmission Date: 20090719
  Serious: Yes (Life-Threatening, Hospitalization, Other)
  Sender: FDA-Public Use
  Company Number: FR-BRISTOL-MYERS SQUIBB COMPANY-14476014

PATIENT
  Age: 54 Year
  Sex: Female
  Weight: 42 kg

DRUGS (5)
  1. ORENCIA [Suspect]
     Indication: RHEUMATOID ARTHRITIS
     Dosage: FIRST COURSE ON 10MAY2008;3 COURSES OF ORENCIA 500 MG/COURSE.
     Dates: start: 20080630, end: 20080630
  2. ACTEMRA [Suspect]
     Indication: RHEUMATOID ARTHRITIS
     Dosage: 0.2MG/KG I.E.7MG/KG 1ST COURSE:11JUL08 370MG 2ND:11AUG,344MG 3RD:9OCT,320MG 4TH:30OCT08,300MG
     Dates: start: 20081030, end: 20081030
  3. KINERET [Suspect]
     Indication: RHEUMATOID ARTHRITIS
     Dates: start: 20080301, end: 20080509
  4. IMUREL [Suspect]
     Indication: RHEUMATOID ARTHRITIS
     Dates: start: 20080501, end: 20080801
  5. SOLU-MEDROL [Suspect]
     Indication: RHEUMATOID ARTHRITIS
     Dosage: FROM 10MAY08-10JUN08 RECEIVED A BOLUS OF SOLU-MEDROL.
     Route: 040
     Dates: start: 20080510, end: 20080610

REACTIONS (3)
  - ANAPHYLACTIC SHOCK [None]
  - ARTHRITIS [None]
  - PSOAS ABSCESS [None]
